FAERS Safety Report 21064122 (Version 1)
Quarter: 2022Q3

REPORT INFORMATION
  Report Type: Spontaneous
  Country: US (occurrence: None)
  Receive Date: 20220708
  Receipt Date: 20220708
  Transmission Date: 20221026
  Serious: Yes (Other)
  Sender: FDA-Public Use
  Company Number: None

PATIENT
  Age: 69 Year
  Sex: Female
  Weight: 86.85 kg

DRUGS (7)
  1. QVAR REDIHALER [Suspect]
     Active Substance: BECLOMETHASONE DIPROPIONATE
     Indication: Product used for unknown indication
     Dosage: FREQUENCY : TWICE A DAY;?
     Route: 055
     Dates: start: 20220630, end: 20220630
  2. LOSARTAN [Concomitant]
     Active Substance: LOSARTAN
  3. VITAMIN D NOS [Concomitant]
     Active Substance: VITAMIN D NOS
  4. VENTOLIN [Concomitant]
     Active Substance: ALBUTEROL SULFATE
  5. CALCIUM [Concomitant]
     Active Substance: CALCIUM
  6. VITAMIN E [Concomitant]
     Active Substance: .ALPHA.-TOCOPHEROL
  7. COENZYME Q10 [Concomitant]
     Active Substance: DIETARY SUPPLEMENT\UBIDECARENONE

REACTIONS (9)
  - Cough [None]
  - Bronchospasm [None]
  - Therapy non-responder [None]
  - Oxygen saturation decreased [None]
  - Product quality issue [None]
  - Malaise [None]
  - Respiratory tract irritation [None]
  - Device defective [None]
  - Product contamination [None]

NARRATIVE: CASE EVENT DATE: 20220630
